FAERS Safety Report 7691549-7 (Version None)
Quarter: 2011Q3

REPORT INFORMATION
  Report Type: 
  Country: None (occurrence: None)
  Receive Date: 20110807
  Receipt Date: 20110807
  Transmission Date: 20111222
  Serious: No
  Sender: FDA-Public Use
  Company Number: None

PATIENT
  Age: 63 Year
  Sex: Male
  Weight: 95 kg

DRUGS (1)
  1. SIMVASTATIN [Suspect]
     Dosage: 80 MG AT BEDTIME PO
     Route: 048
     Dates: start: 20110415, end: 20110422

REACTIONS (4)
  - DYSPNOEA [None]
  - RASH MACULO-PAPULAR [None]
  - ERYTHEMA [None]
  - URTICARIA [None]
